FAERS Safety Report 12298234 (Version 1)
Quarter: 2016Q2

REPORT INFORMATION
  Report Type: Report from Study
  Country: CA (occurrence: CA)
  Receive Date: 20160423
  Receipt Date: 20160423
  Transmission Date: 20160815
  Serious: Yes (Other)
  Sender: FDA-Public Use
  Company Number: CA-AMGEN-CANSL2014096785

PATIENT
  Age: 47 Year
  Sex: Female
  Weight: 113.38 kg

DRUGS (12)
  1. VIMOVO [Concomitant]
     Active Substance: ESOMEPRAZOLE MAGNESIUM\NAPROXEN
     Dosage: 500MG PLUS 20MG 1 TABLET TWICE DAILY
  2. APO FUROSEMIDE [Concomitant]
     Active Substance: FUROSEMIDE
     Dosage: 20MG 1 TABLET DAILY
  3. EUROFOLIC [Concomitant]
     Dosage: 5 MG, DAILY EXCEPT ON THE DAY SHE TAKES MEHTOTREXATE
  4. APO LORAZEPAM [Concomitant]
     Dosage: 1MG 1 TABLET AT BEDTIME
  5. HYDROXYCHLOROQUINE [Concomitant]
     Active Substance: HYDROXYCHLOROQUINE
     Dosage: 200MG 1 TABLET DAILY
  6. CHAMPIX [Concomitant]
     Active Substance: VARENICLINE TARTRATE
     Indication: SMOKING CESSATION THERAPY
     Dosage: 1MG 1 TABLET TWICE DAILY
  7. VALSARTAN. [Concomitant]
     Active Substance: VALSARTAN
     Dosage: 80MG PLUS 12.5MG 1 TABLET DAILY
  8. TYLENOL [Concomitant]
     Active Substance: ACETAMINOPHEN
     Dosage: 500MG 1 TABLET 3 TIMES DAILY
  9. ENBREL [Suspect]
     Active Substance: ETANERCEPT
     Indication: RHEUMATOID ARTHRITIS
     Dosage: 50 MG, QWK
     Route: 065
     Dates: start: 20120321
  10. APO MOMETASONE [Concomitant]
     Indication: SINUS DISORDER
     Dosage: 50 MG, UNK
  11. ASAPHEN [Concomitant]
     Active Substance: ASPIRIN
     Dosage: 80 MG, 1 TABLET DAILY
  12. METHOTREXATE [Concomitant]
     Active Substance: METHOTREXATE
     Dosage: 10MG 2.5 TABLETS PO ONCE WEEKLY
     Route: 048

REACTIONS (13)
  - Faeces hard [Not Recovered/Not Resolved]
  - Abdominal discomfort [Not Recovered/Not Resolved]
  - Stress [Not Recovered/Not Resolved]
  - Fatigue [Not Recovered/Not Resolved]
  - Stomatitis [Unknown]
  - Abdominal pain [Not Recovered/Not Resolved]
  - Malaise [Not Recovered/Not Resolved]
  - Constipation [Not Recovered/Not Resolved]
  - Arthralgia [Not Recovered/Not Resolved]
  - Asthenia [Not Recovered/Not Resolved]
  - Bowel movement irregularity [Not Recovered/Not Resolved]
  - Decreased appetite [Not Recovered/Not Resolved]
  - Infected cyst [Not Recovered/Not Resolved]

NARRATIVE: CASE EVENT DATE: 2013
